FAERS Safety Report 6527990-5 (Version None)
Quarter: 2010Q1

REPORT INFORMATION
  Report Type: 
  Country: None (occurrence: None)
  Receive Date: 20100105
  Receipt Date: 20100105
  Transmission Date: 20100710
  Serious: Yes (Life-Threatening)
  Sender: FDA-Public Use
  Company Number: None

PATIENT
  Sex: Female
  Weight: 90.7194 kg

DRUGS (1)
  1. CELEBREX [Suspect]
     Indication: MOBILITY DECREASED
     Dosage: 1 TABLET DAILY PO
     Route: 048
     Dates: start: 20040501, end: 20040608

REACTIONS (8)
  - HAEMORRHAGE [None]
  - HERNIA [None]
  - LOSS OF CONSCIOUSNESS [None]
  - MEDICAL DEVICE COMPLICATION [None]
  - RENAL FAILURE [None]
  - SEPSIS [None]
  - WALKING AID USER [None]
  - WHEELCHAIR USER [None]
